FAERS Safety Report 4708072-1 (Version None)
Quarter: 2005Q3

REPORT INFORMATION
  Report Type: 
  Country: None (occurrence: None)
  Receive Date: 20050707
  Receipt Date: 20050624
  Transmission Date: 20060218
  Serious: Yes (Other)
  Sender: FDA-Public Use
  Company Number: JP-BOEHRINGER INGELHEIM PHARMACEUTICALS, INC.-2005-DE-02429GD

PATIENT
  Age: 60 Year
  Sex: Female

DRUGS (1)
  1. MEXILETINE HCL [Suspect]
     Indication: VENTRICULAR TACHYCARDIA

REACTIONS (5)
  - CARDIAC ANEURYSM [None]
  - DIZZINESS [None]
  - DRUG INEFFECTIVE [None]
  - SYNCOPE [None]
  - VENTRICULAR TACHYCARDIA [None]
